FAERS Safety Report 18570917 (Version 1)
Quarter: 2020Q4

REPORT INFORMATION
  Report Type: Spontaneous
  Country: US (occurrence: US)
  Receive Date: 20201202
  Receipt Date: 20201202
  Transmission Date: 20210114
  Serious: No
  Sender: FDA-Public Use
  Company Number: US-ROCHE-2691120

PATIENT
  Age: 2 Year
  Sex: Female
  Weight: 11.2 kg

DRUGS (4)
  1. CULTURELLE KIDS PACKETS [Concomitant]
     Dosage: 1 PACKET MIXED IN 180 ML WATER VIA G-TUBE
     Route: 051
  2. FAMOTIDINE. [Concomitant]
     Active Substance: FAMOTIDINE
     Indication: GASTROOESOPHAGEAL REFLUX DISEASE
     Dosage: VIA G-TUBE
     Route: 051
  3. VITAMIN D3 [Concomitant]
     Active Substance: CHOLECALCIFEROL
     Dosage: VIA G-TUBE
     Route: 051
  4. EVRYSDI [Suspect]
     Active Substance: RISDIPLAM
     Indication: SPINAL MUSCULAR ATROPHY
     Dosage: VIA PEG TUBE
     Route: 051
     Dates: start: 20201003

REACTIONS (1)
  - Abnormal faeces [Unknown]

NARRATIVE: CASE EVENT DATE: 20201004
